FAERS Safety Report 9176487 (Version 1)
Quarter: 2013Q1

REPORT INFORMATION
  Report Type: Spontaneous
  Country: US (occurrence: None)
  Receive Date: 20130319
  Receipt Date: 20130319
  Transmission Date: 20140127
  Serious: Yes (Other)
  Sender: FDA-Public Use
  Company Number: AUR-APL-2013-02233

PATIENT
  Age: 70 Year
  Sex: Male
  Weight: 103.4 kg

DRUGS (3)
  1. METFORMIN (METFORMIN) [Suspect]
     Indication: DIABETES MELLITUS
     Dosage: 100 MG (500 MG TABLETS TWICE PER DAY) ORAL.
     Route: 048
     Dates: start: 2010, end: 2010
  2. GLIPIZIDE (GLIPIZIDE) [Suspect]
     Indication: DIABETES MELLITUS
     Dosage: 10 MG DOSAGE TAKEN TWICE DAILY.
     Route: 048
     Dates: start: 2005
  3. LOSARTAN (LOSARTAN) [Concomitant]

REACTIONS (7)
  - Eye operation [None]
  - Intraocular lens implant [None]
  - Diplopia [None]
  - Blindness [None]
  - Dizziness [None]
  - Malaise [None]
  - Visual impairment [None]
